FAERS Safety Report 11689898 (Version 2)
Quarter: 2016Q4

REPORT INFORMATION
  Report Type: Spontaneous
  Country: TR (occurrence: TR)
  Receive Date: 20151102
  Receipt Date: 20161031
  Transmission Date: 20170206
  Serious: Yes (Hospitalization)
  Sender: FDA-Public Use
  Company Number: TR-ELI_LILLY_AND_COMPANY-TR201510007073

PATIENT
  Age: 33 Year
  Sex: Male

DRUGS (6)
  1. VITAMIN B1+B6+B12 [Concomitant]
     Indication: RESTLESS LEGS SYNDROME
     Dosage: UNK
  2. CIALIS [Suspect]
     Active Substance: TADALAFIL
     Indication: ERECTILE DYSFUNCTION
     Dosage: UNK, UNKNOWN
     Route: 065
     Dates: start: 2015
  3. NEURONTIN [Concomitant]
     Active Substance: GABAPENTIN
     Indication: RESTLESS LEGS SYNDROME
     Dosage: 100 MG, UNKNOWN
     Route: 065
  4. LEVITRA [Interacting]
     Active Substance: VARDENAFIL HYDROCHLORIDE TRIHYDRATE
     Indication: ERECTILE DYSFUNCTION
     Dosage: UNK, UNKNOWN
     Route: 065
     Dates: start: 20151018
  5. FOLBIOL [Concomitant]
     Active Substance: FOLIC ACID
     Indication: RESTLESS LEGS SYNDROME
  6. GABASET [Concomitant]
     Indication: RESTLESS LEGS SYNDROME
     Dosage: 300 MG, UNKNOWN
     Route: 065

REACTIONS (14)
  - Irritable bowel syndrome [Unknown]
  - Feeling abnormal [Recovered/Resolved]
  - Insomnia [Recovered/Resolved]
  - Vomiting [Unknown]
  - Stress [Unknown]
  - Haemorrhoids [Unknown]
  - Palpitations [Recovered/Resolved]
  - Poisoning [Unknown]
  - Diarrhoea [Unknown]
  - Depressed mood [Unknown]
  - Drug interaction [Unknown]
  - Tremor [Unknown]
  - Dizziness [Recovered/Resolved]
  - Visual impairment [Recovered/Resolved]
